FAERS Safety Report 8110858-0 (Version None)
Quarter: 2012Q1

REPORT INFORMATION
  Report Type: 
  Country: None (occurrence: None)
  Receive Date: 20120203
  Receipt Date: 20120127
  Transmission Date: 20120608
  Serious: Yes (Hospitalization)
  Sender: FDA-Public Use
  Company Number: JP-BAYER-201010372BYL

PATIENT
  Age: 62 Year
  Sex: Female
  Weight: 56.5 kg

DRUGS (25)
  1. PREDNISOLONE [Concomitant]
     Indication: ADRENOCORTICAL STEROID THERAPY
     Dosage: 2 MG, QD
     Route: 048
     Dates: start: 20100115, end: 20110325
  2. SORAFENIB (RAF KINASE INHIBITOR) [Suspect]
     Route: 048
     Dates: start: 20100213, end: 20100412
  3. DIOVAN [Concomitant]
     Route: 048
     Dates: start: 20100124, end: 20100412
  4. AMLODIPINE [Concomitant]
     Indication: HYPERTENSION
     Dosage: 5 MG (DAILY DOSE), , ORAL
     Route: 048
     Dates: start: 20100115
  5. AMLODIPINE [Concomitant]
     Dosage: 7.5 MG , QD
     Route: 048
     Dates: start: 20100123
  6. ADALAT [Concomitant]
     Indication: HYPERTENSION
     Dosage: 20MG QD
     Route: 048
     Dates: start: 20100327, end: 20100418
  7. SORAFENIB (RAF KINASE INHIBITOR) [Suspect]
     Indication: METASTATIC RENAL CELL CARCINOMA
     Route: 048
     Dates: start: 20100115, end: 20100128
  8. SORAFENIB (RAF KINASE INHIBITOR) [Suspect]
     Dosage: UNK
     Route: 048
     Dates: start: 20100508, end: 20110311
  9. ADALAT [Concomitant]
     Dosage: 20 MG, QD
     Route: 048
     Dates: start: 20100928, end: 20110311
  10. LANSOPRAZOLE [Concomitant]
     Indication: GASTRITIS PROPHYLAXIS
     Dosage: 20 MG, QD
     Route: 048
     Dates: start: 20101130
  11. POTASSIUM-MAGNESIUM-L-ASPARAGINATE [Concomitant]
     Indication: BLOOD POTASSIUM DECREASED
     Dosage: DAILY DOSE 300 MG
     Route: 048
     Dates: start: 20110131
  12. DIOVAN [Concomitant]
     Indication: HYPERTENSION
     Dosage: 80 MG (DAILY DOSE), , ORAL
     Route: 048
     Dates: start: 20080301
  13. MAGMITT [Concomitant]
     Indication: CONSTIPATION PROPHYLAXIS
     Dosage: AS NEEDED, QS
     Route: 048
  14. CORTRIL [Concomitant]
     Dosage: DOSE PER TREATMENT DAY: 20MG
     Dates: start: 20100116, end: 20110324
  15. CORTRIL [Concomitant]
     Dosage: 30 MG DAILY
     Dates: start: 20110328
  16. DIOVAN [Concomitant]
     Dosage: 120 MG, QD
     Route: 048
     Dates: start: 20101229, end: 20110311
  17. CORTRIL [Concomitant]
     Indication: ADRENOCORTICAL STEROID THERAPY
     Dosage: 20 MG, QD
     Route: 048
     Dates: start: 20070101, end: 20100115
  18. HIRUDOID [Concomitant]
     Indication: PROPHYLAXIS
     Dosage: AS NEEDED, QS
     Route: 061
     Dates: start: 20100115
  19. PREDNISOLONE [Concomitant]
     Indication: ADRENAL INSUFFICIENCY
     Dosage: 2 MG, QD
     Route: 048
     Dates: start: 20110328
  20. STOMARCON [Concomitant]
     Indication: GASTRITIS PROPHYLAXIS
     Dosage: 20MG QD
     Route: 048
  21. KINDAVATE [Concomitant]
     Indication: RASH
     Dosage: AS NEEDED, QS
     Route: 061
     Dates: start: 20100122
  22. FAMOTIDINE [Concomitant]
     Indication: GASTRITIS PROPHYLAXIS
     Dosage: 20MG QD
     Route: 048
     Dates: start: 20100204
  23. URSO 250 [Concomitant]
     Indication: HEPATIC FUNCTION ABNORMAL
     Dosage: 300 MG (DAILY DOSE), TID, ORAL
     Route: 048
     Dates: start: 20100326
  24. LEVOTHYROXINE SODIUM [Concomitant]
     Indication: HYPOTHYROIDISM
     Dosage: UNK
     Route: 048
     Dates: start: 20101229
  25. LASIX [Concomitant]
     Indication: OEDEMA
     Dosage: UNK
     Route: 048
     Dates: start: 20101023

REACTIONS (12)
  - BLOOD ALKALINE PHOSPHATASE INCREASED [None]
  - DIARRHOEA [None]
  - DECREASED APPETITE [None]
  - STOMATITIS [None]
  - BLOOD LACTATE DEHYDROGENASE INCREASED [None]
  - HERPES ZOSTER [None]
  - MALAISE [None]
  - GAMMA-GLUTAMYLTRANSFERASE INCREASED [None]
  - ASPARTATE AMINOTRANSFERASE INCREASED [None]
  - ALANINE AMINOTRANSFERASE INCREASED [None]
  - ELECTROLYTE DEPLETION [None]
  - ADRENAL INSUFFICIENCY [None]
